FAERS Safety Report 6083578-4 (Version None)
Quarter: 2009Q1

REPORT INFORMATION
  Report Type: 
  Country: None (occurrence: None)
  Receive Date: 20090219
  Receipt Date: 20090211
  Transmission Date: 20090719
  Serious: Yes (Other)
  Sender: FDA-Public Use
  Company Number: PHEH2006US04222

PATIENT
  Sex: Male

DRUGS (4)
  1. ZOMETA [Suspect]
     Indication: LUNG NEOPLASM MALIGNANT
     Dosage: UNSPECIFIED
  2. ZOMETA [Suspect]
     Indication: METASTASES TO BONE
  3. SANDOSTATIN [Concomitant]
     Dosage: UNK
  4. RADIOTHERAPY [Concomitant]

REACTIONS (12)
  - ANXIETY [None]
  - BONE DISORDER [None]
  - BONE PAIN [None]
  - DYSPHAGIA [None]
  - EMOTIONAL DISTRESS [None]
  - GINGIVAL BLEEDING [None]
  - ORAL SURGERY [None]
  - OSTEONECROSIS [None]
  - PAIN [None]
  - SCAR [None]
  - STOMATITIS NECROTISING [None]
  - TOOTH EXTRACTION [None]
